FAERS Safety Report 20186433 (Version 1)
Quarter: 2021Q4

REPORT INFORMATION
  Report Type: Spontaneous
  Country: US (occurrence: US)
  Receive Date: 20211215
  Receipt Date: 20211215
  Transmission Date: 20220303
  Serious: No
  Sender: FDA-Public Use
  Company Number: US-RECKITT BENCKISER HEALTHCARE INT LIMITED-RB-82608-2021

PATIENT
  Age: 41 Year
  Sex: Female

DRUGS (1)
  1. DELSYM [Suspect]
     Active Substance: DEXTROMETHORPHAN
     Indication: Bronchitis
     Dosage: 10 MILLILITER, QD
     Route: 065
     Dates: start: 20201228, end: 20201229

REACTIONS (1)
  - Drug ineffective [Recovered/Resolved]
